FAERS Safety Report 18570577 (Version 1)
Quarter: 2020Q4

REPORT INFORMATION
  Report Type: Spontaneous
  Country: US (occurrence: US)
  Receive Date: 20201202
  Receipt Date: 20201202
  Transmission Date: 20210114
  Serious: Yes (Other)
  Sender: FDA-Public Use
  Company Number: US-FRESENIUS KABI-FK202012740

PATIENT
  Age: 54 Year
  Sex: Female

DRUGS (1)
  1. POLOCAINE-MPF [Suspect]
     Active Substance: MEPIVACAINE HYDROCHLORIDE
     Indication: NERVE BLOCK
     Route: 037
     Dates: start: 20201125, end: 20201125

REACTIONS (2)
  - Pain [Unknown]
  - Therapeutic product effect decreased [Unknown]
